FAERS Safety Report 7756340-1 (Version None)
Quarter: 2011Q3

REPORT INFORMATION
  Report Type: 
  Country: None (occurrence: None)
  Receive Date: 20110915
  Receipt Date: 20110915
  Transmission Date: 20111222
  Serious: No
  Sender: FDA-Public Use
  Company Number: None

PATIENT
  Age: 77 Year
  Sex: Male

DRUGS (10)
  1. ONDANSETRON [Concomitant]
  2. MEGESTROL ACETATE [Concomitant]
  3. FUROSEMIDE [Concomitant]
  4. TAMSULOSIN HCL [Concomitant]
  5. MELPHALAN HYDROCHLORIDE [Concomitant]
  6. URSODIOL [Concomitant]
  7. METHYLIN [Concomitant]
  8. FAMOTIDINE [Concomitant]
  9. PREDNISONE [Concomitant]
  10. REVLIMID [Suspect]
     Indication: AMYLOIDOSIS
     Dosage: REVLIMID 5 DAILY ORAL
     Route: 048
     Dates: start: 20110303

REACTIONS (2)
  - ASTHENIA [None]
  - DRUG ERUPTION [None]
